FAERS Safety Report 13017483 (Version 6)
Quarter: 2021Q4

REPORT INFORMATION
  Report Type: Report from Study
  Country: US (occurrence: US)
  Receive Date: 20161212
  Receipt Date: 20211214
  Transmission Date: 20220303
  Serious: Yes (Death, Hospitalization)
  Sender: FDA-Public Use
  Company Number: US-PFIZER INC-2016570700

PATIENT
  Age: 67 Year
  Sex: Male
  Weight: 66.49 kg

DRUGS (9)
  1. PALBOCICLIB [Suspect]
     Active Substance: PALBOCICLIB
     Indication: Squamous cell carcinoma of head and neck
     Dosage: 125 MG, ONCE DAILY FOR 21 DAYS (CYCLE 28 DAYS)
     Route: 048
     Dates: start: 20161115, end: 20161122
  2. MS CONTIN [Suspect]
     Active Substance: MORPHINE SULFATE
     Indication: Pain
     Dosage: 30 MG, 2X/DAY
     Route: 048
     Dates: start: 20161118, end: 20161123
  3. AMOXICILLIN\CLAVULANIC ACID [Concomitant]
     Active Substance: AMOXICILLIN\CLAVULANIC ACID
     Indication: Sepsis
     Dosage: 875 MG/125 MG, EVERY 12 HRSX7 DAYS PEG TUBE
     Dates: start: 2016, end: 20161123
  4. GABAPENTIN [Concomitant]
     Active Substance: GABAPENTIN
     Indication: Pain
     Dosage: 2.5 ML, (250 MG/5 ML) BID
     Route: 048
     Dates: start: 20160920, end: 20161123
  5. PINDOLOL [Concomitant]
     Active Substance: PINDOLOL
     Indication: Hypertension
     Dosage: 10 MG, BID
     Route: 048
     Dates: start: 20161021, end: 20161123
  6. OXYCODONE [Concomitant]
     Active Substance: OXYCODONE
     Indication: Pain
     Dosage: 5 ML (5 MG/5 ML), Q6HRS PRN
     Route: 048
     Dates: start: 20160920, end: 20161123
  7. DOCUSATE SODIUM [Concomitant]
     Active Substance: DOCUSATE SODIUM
     Indication: Constipation
     Dosage: 100 MG, TID
     Route: 048
     Dates: start: 2016, end: 20161123
  8. SENNOSIDES A AND B [Concomitant]
     Active Substance: SENNOSIDES A AND B
     Indication: Constipation
     Dosage: 2 TABLETS HS, PRN
     Route: 048
     Dates: start: 2016, end: 20161123
  9. MORPHINE SULFATE [Concomitant]
     Active Substance: MORPHINE SULFATE
     Indication: Pain
     Dosage: 30 MG, BID
     Route: 048
     Dates: start: 20161118, end: 20161123

REACTIONS (4)
  - Sepsis [Fatal]
  - Confusional state [Not Recovered/Not Resolved]
  - Hypercalcaemia [Not Recovered/Not Resolved]
  - Abscess neck [Not Recovered/Not Resolved]

NARRATIVE: CASE EVENT DATE: 20161123
